FAERS Safety Report 22362024 (Version 1)
Quarter: 2023Q2

REPORT INFORMATION
  Report Type: Spontaneous
  Country: CN (occurrence: CN)
  Receive Date: 20230524
  Receipt Date: 20230524
  Transmission Date: 20230721
  Serious: Yes (Hospitalization, Other)
  Sender: FDA-Public Use
  Company Number: CN-PFIZER INC-PV202300088602

PATIENT
  Age: 5 Year
  Sex: Male
  Weight: 18.5 kg

DRUGS (4)
  1. CYTARABINE [Suspect]
     Active Substance: CYTARABINE
     Indication: Chemotherapy
     Dosage: 1.53 G, 2X/DAY
     Route: 041
     Dates: start: 20230418, end: 20230419
  2. ETOPOSIDE [Suspect]
     Active Substance: ETOPOSIDE
     Indication: Chemotherapy
     Dosage: 76.5 MG, 2X/DAY
     Route: 041
     Dates: start: 20230420, end: 20230422
  3. PEGASPARGASE [Suspect]
     Active Substance: PEGASPARGASE
     Indication: Chemotherapy
     Dosage: 1912.5 IU, 1X/DAY
     Route: 030
     Dates: start: 20230423, end: 20230423
  4. DEXAMETHASONE ACETATE [Suspect]
     Active Substance: DEXAMETHASONE ACETATE
     Indication: Chemotherapy
     Dosage: 5.1 MG, 3X/DAY
     Route: 048
     Dates: start: 20230418, end: 20230422

REACTIONS (4)
  - Myelosuppression [Recovering/Resolving]
  - Hypokalaemia [Recovering/Resolving]
  - Mucosal inflammation [Recovering/Resolving]
  - Enteritis [Recovering/Resolving]

NARRATIVE: CASE EVENT DATE: 20230425
